FAERS Safety Report 21104850 (Version 1)
Quarter: 2022Q3

REPORT INFORMATION
  Report Type: Spontaneous
  Country: CH (occurrence: CH)
  Receive Date: 20220720
  Receipt Date: 20220720
  Transmission Date: 20221026
  Serious: Yes (Other)
  Sender: FDA-Public Use
  Company Number: CH-SM-2022-17318

PATIENT
  Age: 49 Year
  Sex: Female

DRUGS (3)
  1. OCREVUS [Suspect]
     Active Substance: OCRELIZUMAB
     Indication: Multiple sclerosis
     Dosage: OCREVUS (OCRELIZUMAB) 600 MG INTRAVENOUS APPLICATION EVERY 6 MONTHS FROM SEPTEMBER 2018 UNTIL
     Route: 042
     Dates: start: 201809, end: 20211223
  2. MIRABEGRON [Concomitant]
     Active Substance: MIRABEGRON
     Dosage: BETMIGA (MIRABEGRON) 25 MG / DAY ORAL INTAKE, FROM UNKNOWN TIME UNTIL FURTHER NOTICE
     Route: 048
  3. TYSABRI [Concomitant]
     Active Substance: NATALIZUMAB
     Dosage: TYSABRI (NATALIZUMAB) 2008-2018 (ANTI-JCV-AK POSITIVE 01/2018)
     Route: 065
     Dates: start: 2008, end: 2018

REACTIONS (2)
  - Hypersensitivity pneumonitis [Not Recovered/Not Resolved]
  - Interstitial lung disease [Not Recovered/Not Resolved]

NARRATIVE: CASE EVENT DATE: 20220301
